FAERS Safety Report 5695906-X (Version None)
Quarter: 2008Q2

REPORT INFORMATION
  Report Type: 
  Country: None (occurrence: None)
  Receive Date: 20080407
  Receipt Date: 20080403
  Transmission Date: 20081010
  Serious: Yes (Other)
  Sender: FDA-Public Use
  Company Number: HQWYE858604MAR05

PATIENT
  Sex: Female
  Weight: 115.77 kg

DRUGS (21)
  1. SIROLIMUS [Suspect]
     Indication: PROPHYLAXIS AGAINST TRANSPLANT REJECTION
     Route: 048
     Dates: start: 20050211, end: 20050223
  2. SIROLIMUS [Suspect]
     Route: 048
     Dates: start: 20050224, end: 20050303
  3. SIROLIMUS [Suspect]
     Route: 048
     Dates: start: 20050309
  4. SERTRALINE [Concomitant]
     Indication: DEPRESSION
     Route: 048
     Dates: start: 20010209
  5. ZOLPIDEM [Concomitant]
     Indication: INSOMNIA
     Route: 048
     Dates: start: 20020318
  6. DIVALPROEX SODIUM [Concomitant]
     Indication: ANXIETY
     Route: 048
     Dates: start: 20040812
  7. FUROSEMIDE [Concomitant]
     Indication: DIURETIC THERAPY
     Route: 048
     Dates: start: 20000403
  8. GLIMEPIRIDE [Concomitant]
     Indication: HYPERGLYCAEMIA
     Route: 048
     Dates: start: 20040102
  9. OMEPRAZOLE [Concomitant]
     Indication: GASTROINTESTINAL DISORDER
     Route: 048
     Dates: start: 20020224
  10. POLYCARBOPHIL [Concomitant]
     Indication: LAXATIVE SUPPORTIVE CARE
     Dosage: 1 TSP EVERY 1 DAY
     Route: 048
     Dates: start: 20000215
  11. MAGNESIUM OXIDE [Concomitant]
     Indication: ELECTROLYTE SUBSTITUTION THERAPY
     Route: 048
     Dates: start: 20000327
  12. FOLIC ACID [Concomitant]
     Indication: VITAMIN SUPPLEMENTATION
     Route: 048
     Dates: start: 20020318
  13. CALCIUM [Concomitant]
     Indication: ELECTROLYTE SUBSTITUTION THERAPY
     Route: 048
     Dates: start: 20000215
  14. ASCORBIC ACID/ERGOCALCIFEROL/FOLIC ACID/NICOTINAMIDE/PANTHENOL/RETINOL [Concomitant]
     Indication: VITAMIN SUPPLEMENTATION
     Route: 048
     Dates: start: 20000410
  15. ROSIGLITAZONE [Concomitant]
     Indication: HYPERGLYCAEMIA
     Route: 048
     Dates: start: 20041216
  16. AVEENO BATH [Concomitant]
     Indication: DRY SKIN
     Dosage: UNSPECIFIED
     Route: 061
     Dates: start: 20050208
  17. AMLODIPINE [Concomitant]
     Indication: HYPERTENSION
     Route: 048
     Dates: start: 20000417
  18. LISINOPRIL [Concomitant]
     Indication: HYPERTENSION
     Route: 048
     Dates: start: 20040311
  19. LISINOPRIL [Concomitant]
     Route: 048
     Dates: start: 20050318
  20. EZETIMIBE/SIMVASTATIN [Concomitant]
     Indication: HYPERCHOLESTEROLAEMIA
     Dosage: 10/10 MG DAILY
     Route: 048
     Dates: start: 20050129
  21. GABAPENTIN [Concomitant]
     Indication: NEUROPATHY PERIPHERAL
     Route: 048
     Dates: start: 20001116

REACTIONS (4)
  - ACCIDENTAL OVERDOSE [None]
  - HEADACHE [None]
  - MEDICATION ERROR [None]
  - ORAL PAIN [None]
